FAERS Safety Report 21673018 (Version 2)
Quarter: 2022Q4

REPORT INFORMATION
  Report Type: Report from Study
  Country: NL (occurrence: NL)
  Receive Date: 20221202
  Receipt Date: 20221212
  Transmission Date: 20230113
  Serious: Yes (Hospitalization, Other)
  Sender: FDA-Public Use
  Company Number: NL-ABBVIE-4220718

PATIENT
  Age: 53 Year
  Sex: Male

DRUGS (4)
  1. CARBIDOPA\LEVODOPA [Suspect]
     Active Substance: CARBIDOPA\LEVODOPA
     Indication: Parkinson^s disease
     Dosage: MD: 7.0ML, CD: 4.0ML/H, ED: 1.0ML?REMAINS AT 16 HOURS?LAST ADMINISTRATION DATE WAS NOV 2022
     Route: 050
     Dates: start: 20221121
  2. CARBIDOPA\LEVODOPA [Suspect]
     Active Substance: CARBIDOPA\LEVODOPA
     Dosage: MD: 11.0 ML; CD:4.3 ML/H; ED: 3.0 ML?REMAINS AT 16 HOURS?FIRST ADMINISTRATION DATE WAS NOV 2022
     Route: 050
  3. OLANZAPINE [Concomitant]
     Active Substance: OLANZAPINE
     Indication: Hallucination
  4. POLYETHYLENE GLYCOLS [Concomitant]
     Active Substance: POLYETHYLENE GLYCOLS
     Indication: Bowel movement irregularity

REACTIONS (5)
  - Post procedural complication [Recovering/Resolving]
  - Flatulence [Recovering/Resolving]
  - Gastrostomy [Unknown]
  - Device placement issue [Unknown]
  - Abdominal pain upper [Recovering/Resolving]

NARRATIVE: CASE EVENT DATE: 20221101
